FAERS Safety Report 23836932 (Version 1)
Quarter: 2024Q2

REPORT INFORMATION
  Report Type: Spontaneous
  Country: US (occurrence: US)
  Receive Date: 20240509
  Receipt Date: 20240509
  Transmission Date: 20240715
  Serious: No
  Sender: FDA-Public Use
  Company Number: US-MYLANLABS-2024M1039867

PATIENT
  Sex: Female

DRUGS (1)
  1. ESTRADIOL TRANSDERMAL SYSTEM [Suspect]
     Active Substance: ESTRADIOL
     Indication: Product used for unknown indication
     Dosage: 0.0375 MILLIGRAM, QD (PER DAY, ONCE WEEKLY)
     Route: 062

REACTIONS (4)
  - Hot flush [Unknown]
  - Vulvovaginal discomfort [Unknown]
  - Urinary incontinence [Unknown]
  - Product formulation issue [Unknown]
